FAERS Safety Report 4897666-9 (Version None)
Quarter: 2006Q1

REPORT INFORMATION
  Report Type: 
  Country: None (occurrence: None)
  Receive Date: 20060130
  Receipt Date: 20060130
  Transmission Date: 20060701
  Serious: No
  Sender: FDA-Public Use
  Company Number: None

PATIENT
  Age: 46 Year
  Sex: Female
  Weight: 73.0291 kg

DRUGS (5)
  1. FENTANYL [Suspect]
     Indication: MULTIPLE SCLEROSIS
     Dosage: 100 MCG/HR
     Route: 062
     Dates: start: 20050101
  2. FENTANYL [Suspect]
     Indication: PAIN
     Dosage: 100 MCG/HR
     Route: 062
     Dates: start: 20050101
  3. NEXIUM [Concomitant]
  4. VICODIN [Concomitant]
  5. LEVOTHYROXINE SODIUM [Concomitant]

REACTIONS (7)
  - DRUG EFFECT DECREASED [None]
  - DRUG EFFECT INCREASED [None]
  - NAUSEA [None]
  - PHARMACEUTICAL PRODUCT COMPLAINT [None]
  - SEDATION [None]
  - THERAPEUTIC RESPONSE UNEXPECTED WITH DRUG SUBSTITUTION [None]
  - VOMITING [None]
